FAERS Safety Report 6329529-6 (Version None)
Quarter: 2009Q3

REPORT INFORMATION
  Report Type: 
  Country: None (occurrence: None)
  Receive Date: 20090826
  Receipt Date: 20090814
  Transmission Date: 20100115
  Serious: Yes (Hospitalization, Other)
  Sender: FDA-Public Use
  Company Number: CA-ELI_LILLY_AND_COMPANY-CA200902007922

PATIENT
  Sex: Female
  Weight: 61.678 kg

DRUGS (4)
  1. CYMBALTA [Suspect]
     Indication: DEPRESSION
     Dosage: 60 MG, DAILY (1/D)
     Route: 048
     Dates: start: 20090108, end: 20090123
  2. ADALAT [Concomitant]
     Dosage: 1 D/F, EACH EVENING
  3. IMOVANE [Concomitant]
     Dosage: 7.5 MG, AS NEEDED
  4. ORTHO-NOVUM 1/35 [Concomitant]

REACTIONS (1)
  - HEPATITIS [None]
